FAERS Safety Report 16627294 (Version 4)
Quarter: 2020Q4

REPORT INFORMATION
  Report Type: Report from Study
  Country: BR (occurrence: BR)
  Receive Date: 20190724
  Receipt Date: 20201007
  Transmission Date: 20210113
  Serious: Yes (Other)
  Sender: FDA-Public Use
  Company Number: PHHY2016BR178451

PATIENT
  Age: 70 Year
  Sex: Female
  Weight: 50 kg

DRUGS (14)
  1. SANDOSTATIN LAR DEPOT [Suspect]
     Active Substance: OCTREOTIDE ACETATE
     Dosage: 20 MG, QMO
     Route: 030
  2. LANREOTIDE [Suspect]
     Active Substance: LANREOTIDE
     Dosage: 90 MG, UNK
     Route: 065
  3. CHONDROITIN SULFATE [Concomitant]
     Active Substance: CHONDROITIN SULFATE (BOVINE)
     Indication: PRODUCT USED FOR UNKNOWN INDICATION
     Route: 065
  4. ATORVASTATINA [Concomitant]
     Active Substance: ATORVASTATIN
     Indication: BLOOD CHOLESTEROL
     Dosage: UNK
     Route: 065
  5. POTASSIUM SULFATE [Concomitant]
     Active Substance: POTASSIUM SULFATE
     Indication: PRODUCT USED FOR UNKNOWN INDICATION
     Dosage: 600 UNK
     Route: 065
  6. GLYCINE MAX [Concomitant]
     Indication: PRODUCT USED FOR UNKNOWN INDICATION
     Dosage: 20 MG (1 CAPSULE)
     Route: 065
  7. SANDOSTATIN LAR DEPOT [Suspect]
     Active Substance: OCTREOTIDE ACETATE
     Dosage: 30 MG, QMO
     Route: 058
  8. INSULIN [Concomitant]
     Active Substance: INSULIN NOS
     Indication: DIABETES MELLITUS
     Dosage: 3 DRP, TID
     Route: 065
  9. PROLIA [Concomitant]
     Active Substance: DENOSUMAB
     Indication: BONE DISORDER
     Dosage: UNK (1 EVERY 6 MONTH) (ABOUT 1 YEAR AND HALG AGO)
     Route: 065
  10. SANDOSTATIN LAR DEPOT [Suspect]
     Active Substance: OCTREOTIDE ACETATE
     Indication: ACROMEGALY
     Dosage: 30 MG, QMO
     Route: 030
     Dates: start: 201612
  11. LANREOTIDE [Suspect]
     Active Substance: LANREOTIDE
     Indication: ACROMEGALY
     Dosage: 120 MG, UNK
     Route: 065
  12. IBUPROFEN. [Concomitant]
     Active Substance: IBUPROFEN
     Indication: PRODUCT USED FOR UNKNOWN INDICATION
     Route: 065
  13. GLUTAMIN [Concomitant]
     Indication: PRODUCT USED FOR UNKNOWN INDICATION
     Route: 065
  14. SANDOSTATIN LAR DEPOT [Suspect]
     Active Substance: OCTREOTIDE ACETATE
     Dosage: 20 MG, QMO
     Route: 058

REACTIONS (41)
  - Blood glucose decreased [Not Recovered/Not Resolved]
  - Back pain [Recovering/Resolving]
  - Arthritis [Unknown]
  - Lymphadenitis bacterial [Unknown]
  - General physical health deterioration [Unknown]
  - Hypoacusis [Unknown]
  - Nasopharyngitis [Not Recovered/Not Resolved]
  - Decreased appetite [Unknown]
  - Nausea [Unknown]
  - Anxiety [Unknown]
  - Limb discomfort [Unknown]
  - Blood glucose increased [Not Recovered/Not Resolved]
  - Hormone level abnormal [Unknown]
  - Insomnia [Unknown]
  - Sciatica [Unknown]
  - Visual impairment [Unknown]
  - Pain in extremity [Recovering/Resolving]
  - Osteoporosis [Unknown]
  - Product prescribing error [Unknown]
  - Injection site injury [Unknown]
  - Injection site mass [Unknown]
  - Pain [Recovering/Resolving]
  - Chills [Unknown]
  - Blood pressure fluctuation [Unknown]
  - Bone deformity [Unknown]
  - Rheumatic disorder [Unknown]
  - Asthenia [Unknown]
  - Vomiting [Unknown]
  - Drug ineffective [Recovering/Resolving]
  - Retching [Unknown]
  - Sluggishness [Recovering/Resolving]
  - Gait inability [Recovering/Resolving]
  - Injection site pain [Unknown]
  - Malaise [Not Recovered/Not Resolved]
  - Feeding disorder [Unknown]
  - Pyrexia [Unknown]
  - Osteoarthritis [Not Recovered/Not Resolved]
  - Hernia [Unknown]
  - Spinal pain [Unknown]
  - Fatigue [Unknown]
  - Feeling abnormal [Recovering/Resolving]

NARRATIVE: CASE EVENT DATE: 201905
